FAERS Safety Report 19505512 (Version 1)
Quarter: 2021Q3

REPORT INFORMATION
  Report Type: Spontaneous
  Country: DE (occurrence: DE)
  Receive Date: 20210708
  Receipt Date: 20210708
  Transmission Date: 20211014
  Serious: Yes (Hospitalization)
  Sender: FDA-Public Use
  Company Number: DE-TEVA-2021-DE-1929626

PATIENT
  Age: 95 Year
  Sex: Male

DRUGS (16)
  1. NITRENDIPIN [Suspect]
     Active Substance: NITRENDIPINE
     Dosage: 20 MG, MIX?UP,
     Route: 048
  2. RAMIPRIL. [Suspect]
     Active Substance: RAMIPRIL
     Dosage: 5 MG, MIX?UP,
     Route: 048
  3. MELPERON [Concomitant]
     Active Substance: MELPERONE
     Dosage: 25 MILLIGRAM DAILY;   0?0?1?0,
     Route: 048
  4. SPIRONOLACTON [Concomitant]
     Active Substance: SPIRONOLACTONE
     Dosage: .5 MILLIGRAM DAILY; 50 MG, 0.5?0?0?0,
     Route: 048
  5. INDISCHE FLOHSAMEN [Concomitant]
     Dosage: IF NECESSARY,
     Route: 048
  6. SACCHAROMYCES BOULARDII [Concomitant]
     Active Substance: SACCHAROMYCES CEREVISIAE
     Dosage: 50 MG, IF NECESSARY,
     Route: 048
  7. MEMANTIN [Concomitant]
     Active Substance: MEMANTINE
     Dosage: 10 MILLIGRAM DAILY;  1?0?0?0,
     Route: 048
  8. SULFAMETHOXAZOLE W/TRIMETHOPRIM [Concomitant]
     Active Substance: SULFAMETHOXAZOLE\TRIMETHOPRIM
     Dosage: 1920 MILLIGRAM DAILY;  1?0?1?0,
     Route: 048
  9. EMPAGLIFLOZIN [Concomitant]
     Active Substance: EMPAGLIFLOZIN
     Dosage: 10 MILLIGRAM DAILY;  1?0?0?0,
     Route: 048
  10. TORASEMID [Concomitant]
     Active Substance: TORSEMIDE
     Dosage: 10 MILLIGRAM DAILY;  1?0?0?0
     Route: 048
  11. ATORVASTATIN [Concomitant]
     Active Substance: ATORVASTATIN
     Dosage: 10 MILLIGRAM DAILY;   0?0?1?0,
     Route: 048
  12. METOCLOPRAMID [Concomitant]
     Active Substance: METOCLOPRAMIDE
     Dosage: IF NECESSARY,
     Route: 048
  13. METOPROLOL. [Suspect]
     Active Substance: METOPROLOL
     Dosage: 47.5 MG, MIX?UP,
     Route: 048
  14. MELPERON [Concomitant]
     Active Substance: MELPERONE
     Dosage: 25 MG, IF NECESSARY
     Route: 048
  15. METAMIZOL [Concomitant]
     Active Substance: METAMIZOLE SODIUM
     Dosage: 20 GTT, UP TO 60 GTT DAILY, DROPS
     Route: 048
  16. ACETYLSALICYLSAEURE [Concomitant]
     Active Substance: ASPIRIN
     Dosage: 100 MILLIGRAM DAILY;  0?1?0?0,
     Route: 048

REACTIONS (3)
  - Bradycardia [Unknown]
  - Wrong product administered [Unknown]
  - Hypotension [Unknown]

NARRATIVE: CASE EVENT DATE: 20210412
